FAERS Safety Report 19026727 (Version 1)
Quarter: 2021Q1

REPORT INFORMATION
  Report Type: Spontaneous
  Country: CN (occurrence: CN)
  Receive Date: 20210318
  Receipt Date: 20210318
  Transmission Date: 20210420
  Serious: Yes (Other)
  Sender: FDA-Public Use
  Company Number: CN-PFIZER INC-2021264244

PATIENT
  Age: 5 Year
  Sex: Male
  Weight: 17.5 kg

DRUGS (8)
  1. METHOTREXATE. [Suspect]
     Active Substance: METHOTREXATE
     Indication: ACUTE LYMPHOCYTIC LEUKAEMIA
     Dosage: 12.500 MG, 1X/DAY
     Route: 037
     Dates: start: 20210104, end: 20210104
  2. MERCAPTOPURINE. [Suspect]
     Active Substance: MERCAPTOPURINE
     Indication: ACUTE LYMPHOCYTIC LEUKAEMIA
     Dosage: 40 MG, 1X/DAY
     Route: 048
     Dates: start: 20210104, end: 20210104
  3. CYTOSAR [Suspect]
     Active Substance: CYTARABINE
     Indication: ACUTE LYMPHOCYTIC LEUKAEMIA
     Dosage: 0.035 G, 2X/DAY
     Route: 041
     Dates: start: 20210104, end: 20210111
  4. VINCRISTINE SULFATE. [Suspect]
     Active Substance: VINCRISTINE SULFATE
     Indication: ACUTE LYMPHOCYTIC LEUKAEMIA
     Dosage: 1.000000 MG, 1X/DAY
     Route: 042
     Dates: start: 20210104, end: 20210104
  5. CYTOSAR [Suspect]
     Active Substance: CYTARABINE
     Dosage: 0.035 G, 1X/DAY
     Route: 037
     Dates: start: 20210104, end: 20210104
  6. CYCLOPHOSPHAMIDE. [Suspect]
     Active Substance: CYCLOPHOSPHAMIDE
     Indication: ACUTE LYMPHOCYTIC LEUKAEMIA
     Dosage: 0.710 G, 1X/DAY
     Route: 041
     Dates: start: 20210104, end: 20210104
  7. PEGASPARGASE [Suspect]
     Active Substance: PEGASPARGASE
     Indication: ACUTE LYMPHOCYTIC LEUKAEMIA
     Dosage: 1420 UNK, 1X/DAY
     Route: 030
     Dates: start: 20210104, end: 20210104
  8. DEXAMETHASONE SODIUM PHOSPHATE. [Suspect]
     Active Substance: DEXAMETHASONE SODIUM PHOSPHATE
     Indication: ACUTE LYMPHOCYTIC LEUKAEMIA
     Dosage: 2.500 MG, 1X/DAY
     Route: 037
     Dates: start: 20210104, end: 20210104

REACTIONS (1)
  - Myelosuppression [Recovering/Resolving]

NARRATIVE: CASE EVENT DATE: 20210116
